FAERS Safety Report 8813739 (Version 1)
Quarter: 2012Q4

REPORT INFORMATION
  Report Type: 
  Country: US (occurrence: US)
  Receive Date: 20120928
  Receipt Date: 20120928
  Transmission Date: 20130627
  Serious: Yes (Other)
  Sender: FDA-Public Use
  Company Number: US-AMGEN-USASP2012060776

PATIENT
  Age: 63 Year
  Sex: Male

DRUGS (1)
  1. PROLIA [Suspect]
     Indication: BONE LOSS
     Dosage: UNK UNK, one time dose
     Dates: start: 201202

REACTIONS (1)
  - Metastases to bone [Not Recovered/Not Resolved]
